FAERS Safety Report 4892580-7 (Version None)
Quarter: 2006Q1

REPORT INFORMATION
  Report Type: 
  Country: None (occurrence: None)
  Receive Date: 20060125
  Receipt Date: 20060125
  Transmission Date: 20060701
  Serious: Yes (Life-Threatening, Hospitalization, Disabling)
  Sender: FDA-Public Use
  Company Number: None

PATIENT
  Sex: Female
  Weight: 81.6475 kg

DRUGS (1)
  1. ORTHO EVRA [Suspect]
     Indication: CONTRACEPTION
     Dosage: 1 PATCH 1 PATCH/WKLY WKLY CHANGE PLACES
     Dates: end: 20040429

REACTIONS (7)
  - BACK PAIN [None]
  - FEAR [None]
  - PROCEDURAL PAIN [None]
  - PULMONARY EMBOLISM [None]
  - VEIN DISORDER [None]
  - VEIN PAIN [None]
  - VOMITING [None]
